FAERS Safety Report 9848170 (Version 1)
Quarter: 2013Q4

REPORT INFORMATION
  Report Type: Spontaneous
  Country: US (occurrence: None)
  Receive Date: 20131224
  Receipt Date: 20131224
  Transmission Date: 20140711
  Serious: Yes (Other)
  Sender: FDA-Public Use
  Company Number: PHEH2013US018659

PATIENT
  Age: 68 Year
  Sex: Female
  Weight: 70.3 kg

DRUGS (6)
  1. AFINITOR (RAD) TABLET, 10MG [Suspect]
     Indication: RENAL CELL CARCINOMA
     Route: 048
     Dates: start: 20130819, end: 20130831
  2. METFORMIN (METFORMIN) [Concomitant]
  3. CRESTOR (ROSUVASTATIN CALCIUM) [Concomitant]
  4. LISINOPRIL (LISINOPRIL) [Concomitant]
  5. SYNTHROID (LEVOTHYROXINE SODIUM) [Concomitant]
  6. FOSAMAX (ALENDRONATE SODIUM) [Concomitant]

REACTIONS (1)
  - Urticaria [None]
